FAERS Safety Report 7086331-8 (Version None)
Quarter: 2010Q4

REPORT INFORMATION
  Report Type: 
  Country: None (occurrence: None)
  Receive Date: 20101105
  Receipt Date: 20101101
  Transmission Date: 20110411
  Serious: Yes (Hospitalization)
  Sender: FDA-Public Use
  Company Number: JP-CEPHALON-US023289

PATIENT
  Sex: Female

DRUGS (5)
  1. TREANDA [Suspect]
     Indication: NON-HODGKIN'S LYMPHOMA
     Route: 042
     Dates: end: 20080316
  2. SULFAMETHOXAZOLE [Concomitant]
     Route: 065
     Dates: start: 20080313, end: 20080514
  3. ACYCLOVIR [Concomitant]
     Route: 065
     Dates: start: 20080313, end: 20080514
  4. HYALURONATE [Concomitant]
     Route: 065
     Dates: start: 20080301
  5. FLUOROMETHOLONE [Concomitant]
     Route: 065
     Dates: start: 20080301

REACTIONS (2)
  - HEPATIC FUNCTION ABNORMAL [None]
  - PYREXIA [None]
